FAERS Safety Report 4466002-4 (Version None)
Quarter: 2004Q3

REPORT INFORMATION
  Report Type: 
  Country: None (occurrence: None)
  Receive Date: 20040930
  Receipt Date: 20040924
  Transmission Date: 20050211
  Serious: Yes (Death)
  Sender: FDA-Public Use
  Company Number: 2004UW20131

PATIENT
  Age: 62 Year
  Sex: Male

DRUGS (3)
  1. TENORMIN [Suspect]
  2. ASPIRIN [Suspect]
     Dosage: 80 MG PO
     Route: 048
  3. ZOCOR [Concomitant]

REACTIONS (1)
  - ANGIONEUROTIC OEDEMA [None]
